FAERS Safety Report 4866909-X (Version None)
Quarter: 2005Q4

REPORT INFORMATION
  Report Type: 
  Country: None (occurrence: None)
  Receive Date: 20051222
  Receipt Date: 20051213
  Transmission Date: 20060501
  Serious: Yes (Hospitalization, Other)
  Sender: FDA-Public Use
  Company Number: 2005166425

PATIENT
  Age: 48 Year
  Sex: Female

DRUGS (6)
  1. ATORVASTATIN CALCIUM [Suspect]
     Indication: DYSLIPIDAEMIA
     Dosage: 20 MG (20 MG, 1 IN 1 D), ORAL
     Route: 048
     Dates: start: 19980201
  2. WARFARIN (WARFARIN) [Concomitant]
  3. ACETYLSALICYLIC ACID SRT [Concomitant]
  4. LOSARTAN POTASSIUM [Concomitant]
  5. CAPTOPRIL [Concomitant]
  6. METHYLDOPA [Concomitant]

REACTIONS (2)
  - HYPERTENSION [None]
  - THROMBOSIS [None]
